FAERS Safety Report 11695429 (Version 1)
Quarter: 2015Q4

REPORT INFORMATION
  Report Type: Report from Study
  Country: US (occurrence: US)
  Receive Date: 20151104
  Receipt Date: 20151104
  Transmission Date: 20160304
  Serious: Yes (Other)
  Sender: FDA-Public Use
  Company Number: US-ROCHE-1560517

PATIENT
  Age: 64 Year
  Sex: Female
  Weight: 118.04 kg

DRUGS (5)
  1. ERIVEDGE [Suspect]
     Active Substance: VISMODEGIB
     Route: 048
     Dates: start: 20150301, end: 20150725
  2. ERIVEDGE [Suspect]
     Active Substance: VISMODEGIB
     Route: 048
     Dates: start: 2015, end: 201507
  3. SYNTHROID [Concomitant]
     Active Substance: LEVOTHYROXINE SODIUM
     Indication: THYROID DISORDER
  4. ERIVEDGE [Suspect]
     Active Substance: VISMODEGIB
     Dosage: DAILY FOR 3 WEEKS, THEN EVERY OTHER DAY
     Route: 065
  5. ERIVEDGE [Suspect]
     Active Substance: VISMODEGIB
     Indication: BASAL CELL CARCINOMA
     Dosage: 6-7 WEEKS AGO
     Route: 048
     Dates: start: 2015, end: 2015

REACTIONS (6)
  - Rash [Recovered/Resolved]
  - Lymphadenopathy [Not Recovered/Not Resolved]
  - Muscle spasms [Recovered/Resolved]
  - Myalgia [Recovered/Resolved]
  - Dysgeusia [Not Recovered/Not Resolved]
  - Alopecia [Not Recovered/Not Resolved]

NARRATIVE: CASE EVENT DATE: 2015
